FAERS Safety Report 7227035-8 (Version None)
Quarter: 2011Q1

REPORT INFORMATION
  Report Type: 
  Country: None (occurrence: None)
  Receive Date: 20110114
  Receipt Date: 20110106
  Transmission Date: 20110831
  Serious: Yes (Hospitalization)
  Sender: FDA-Public Use
  Company Number: US-SANOFI-AVENTIS-2011SA001313

PATIENT
  Age: 86 Year
  Sex: Male

DRUGS (2)
  1. LANTUS [Suspect]
     Indication: DIABETES MELLITUS
     Dosage: DOSE:20 UNIT(S)
     Route: 058
  2. NOVOLOG [Suspect]
     Indication: DIABETES MELLITUS

REACTIONS (2)
  - INTESTINAL OBSTRUCTION [None]
  - ASTHENIA [None]
